FAERS Safety Report 25043819 (Version 1)
Quarter: 2025Q1

REPORT INFORMATION
  Report Type: Spontaneous
  Country: FR (occurrence: FR)
  Receive Date: 20250306
  Receipt Date: 20250306
  Transmission Date: 20250408
  Serious: Yes (Death)
  Sender: NOVARTIS
  Company Number: FR-002147023-NVSC2025FR037666

PATIENT
  Age: 50 Year
  Sex: Female

DRUGS (1)
  1. LAPATINIB [Suspect]
     Active Substance: LAPATINIB
     Indication: Breast cancer
     Dosage: 1500 MG, QD (PER DAY IN A SINGLE DOSE)
     Route: 065
     Dates: start: 20240910

REACTIONS (1)
  - Death [Fatal]
